FAERS Safety Report 25013304 (Version 1)
Quarter: 2025Q1

REPORT INFORMATION
  Report Type: Spontaneous
  Country: FR (occurrence: FR)
  Receive Date: 20250226
  Receipt Date: 20250226
  Transmission Date: 20250408
  Serious: Yes (Hospitalization, Other)
  Sender: AUROBINDO
  Company Number: FR-AFSSAPS-DJ2025000155

PATIENT
  Age: 83 Year
  Sex: Female
  Weight: 50 kg

DRUGS (3)
  1. DOXYCYCLINE [Suspect]
     Active Substance: DOXYCYCLINE
     Indication: Antibiotic prophylaxis
     Dosage: 100 MILLIGRAM, ONCE A DAY
     Route: 048
     Dates: start: 20240516
  2. FLUOROURACIL [Suspect]
     Active Substance: FLUOROURACIL
     Indication: Colon cancer metastatic
     Route: 042
     Dates: start: 20240516, end: 20241114
  3. VECTIBIX [Suspect]
     Active Substance: PANITUMUMAB
     Indication: Colon cancer metastatic
     Route: 042
     Dates: start: 20240516, end: 20241114

REACTIONS (1)
  - Cutaneous lupus erythematosus [Recovering/Resolving]

NARRATIVE: CASE EVENT DATE: 20240615
